FAERS Safety Report 21077871 (Version 1)
Quarter: 2022Q3

REPORT INFORMATION
  Report Type: Spontaneous
  Country: CN (occurrence: CN)
  Receive Date: 20220713
  Receipt Date: 20220713
  Transmission Date: 20221027
  Serious: Yes (Other)
  Sender: FDA-Public Use
  Company Number: None

PATIENT
  Age: 69 Year
  Sex: Female
  Weight: 70 kg

DRUGS (8)
  1. CYCLOPHOSPHAMIDE [Suspect]
     Active Substance: CYCLOPHOSPHAMIDE
     Indication: Breast cancer female
     Dosage: CYCLOPHOSPHAMIDE + NS, FIRST CHEMOTHERAPY
     Route: 042
  2. CYCLOPHOSPHAMIDE [Suspect]
     Active Substance: CYCLOPHOSPHAMIDE
     Dosage: CYCLOPHOSPHAMIDE(800MG) + NS(40ML),SECOND CHEMOTHETAPY
     Route: 042
     Dates: start: 20220524, end: 20220524
  3. SODIUM CHLORIDE [Suspect]
     Active Substance: SODIUM CHLORIDE
     Indication: Medication dilution
     Dosage: CYCLOPHOSPHAMIDE + NS, FIRST CHEMOTHERAPY
     Route: 042
  4. SODIUM CHLORIDE [Suspect]
     Active Substance: SODIUM CHLORIDE
     Dosage: EPIRUBICIN HYDROCHLORIDE + NS, FIRST CHEMOTHERAPY
     Route: 041
  5. SODIUM CHLORIDE [Suspect]
     Active Substance: SODIUM CHLORIDE
     Dosage: CYCLOPHOSPHAMIDE (800MG) + NS(40ML),SECOND CHEMOTHETAPY
     Route: 042
     Dates: start: 20220524, end: 20220524
  6. SODIUM CHLORIDE [Suspect]
     Active Substance: SODIUM CHLORIDE
     Dosage: EPIRUICIN HYDROCHLORIDE (120MG) + NS(100ML),SECOND CHEMOTHERAPY
     Route: 041
     Dates: start: 20220524, end: 20220524
  7. EPIRUBICIN [Suspect]
     Active Substance: EPIRUBICIN
     Indication: Breast cancer female
     Dosage: EPIRUBICIN HYDROCHLORIDE + NS, FIRST CHEMOTHERAPY
     Route: 041
  8. EPIRUBICIN [Suspect]
     Active Substance: EPIRUBICIN
     Dosage: EPIRUICIN HYDROCHLORIDE (120MG) + NS(100ML),SECOND CHEMOTHERAPY
     Route: 041
     Dates: start: 20220524, end: 20220524

REACTIONS (2)
  - White blood cell count decreased [Recovered/Resolved]
  - Agranulocytosis [Recovered/Resolved]

NARRATIVE: CASE EVENT DATE: 20220606
